FAERS Safety Report 8190503-9 (Version None)
Quarter: 2012Q1

REPORT INFORMATION
  Report Type: 
  Country: None (occurrence: None)
  Receive Date: 20120307
  Receipt Date: 20120301
  Transmission Date: 20120608
  Serious: Yes (Life-Threatening)
  Sender: FDA-Public Use
  Company Number: JP-SANOFI-AVENTIS-2012SA014546

PATIENT
  Age: 57 Year
  Sex: Female
  Weight: 61 kg

DRUGS (12)
  1. RASBURICASE [Suspect]
     Route: 042
     Dates: start: 20111118, end: 20111124
  2. CYCLOPHOSPHAMIDE [Concomitant]
     Indication: CHEMOTHERAPY
     Dosage: TREATMENT SCHEDULE: 1 WEEK
     Route: 042
     Dates: start: 20111119, end: 20111210
  3. RASBURICASE [Suspect]
     Route: 042
     Dates: start: 20111118, end: 20111124
  4. DAUNORUBICIN HCL [Concomitant]
     Indication: CHEMOTHERAPY
     Dosage: TREATMENT SCHEDULE: 1-3 WEEKS
     Route: 042
     Dates: start: 20111119, end: 20111210
  5. FLUCONAZOLE [Concomitant]
     Route: 048
     Dates: start: 20111118
  6. LEVOFLOXACIN [Concomitant]
     Route: 048
     Dates: start: 20111122, end: 20111128
  7. ONCOVIN [Concomitant]
     Indication: CHEMOTHERAPY
     Dosage: TREATMENT SCHDULE: 1.8-15.22
     Route: 042
     Dates: start: 20111119, end: 20111210
  8. LANSOPRAZOLE [Concomitant]
     Route: 048
     Dates: start: 20111118
  9. MAGNESIUM OXIDE [Concomitant]
     Route: 048
     Dates: start: 20111118
  10. LEUNASE [Concomitant]
     Indication: CHEMOTHERAPY
     Dosage: DOSE: 3000U/M2, TREATMENT SCHEDULE:4, 11, 13, 16, 18, 20
     Route: 042
     Dates: start: 20111119, end: 20111210
  11. PREDNISOLONE [Concomitant]
     Indication: CHEMOTHERAPY
     Dosage: TREATMENT SCHEDULE: 1-7 WEEKS
     Route: 048
     Dates: start: 20111119, end: 20111210
  12. LEVOFLOXACIN [Concomitant]
     Route: 048
     Dates: start: 20111203, end: 20111210

REACTIONS (7)
  - RED BLOOD CELL COUNT DECREASED [None]
  - PLATELET COUNT DECREASED [None]
  - FEBRILE NEUTROPENIA [None]
  - LYMPHOCYTE COUNT DECREASED [None]
  - HAEMOGLOBIN DECREASED [None]
  - WHITE BLOOD CELL COUNT DECREASED [None]
  - NEUTROPHIL COUNT INCREASED [None]
